FAERS Safety Report 14917851 (Version 4)
Quarter: 2018Q2

REPORT INFORMATION
  Report Type: Spontaneous
  Country: GB (occurrence: GB)
  Receive Date: 20180521
  Receipt Date: 20180620
  Transmission Date: 20180711
  Serious: Yes (Hospitalization, Other)
  Sender: FDA-Public Use
  Company Number: GB-SUN PHARMACEUTICAL INDUSTRIES LTD-2018RR-173197

PATIENT
  Age: 62 Year
  Sex: Male

DRUGS (2)
  1. GEMCITABINE [Suspect]
     Active Substance: GEMCITABINE\GEMCITABINE HYDROCHLORIDE
     Dosage: RECEIVED A 25% REDUCED DOSE AT CYCLE 5
     Route: 065
  2. GEMCITABINE [Suspect]
     Active Substance: GEMCITABINE\GEMCITABINE HYDROCHLORIDE
     Indication: PANCREATIC CARCINOMA
     Dosage: 1,000 MG/M2 TO THE NEAREST 38 MG AS 2,100 MG GIVEN ON DAY 1, 8, AND 15 ON A 28-DAY CYCLE FOR 6 C
     Route: 042

REACTIONS (7)
  - Cardiac failure [Recovering/Resolving]
  - Acute kidney injury [Unknown]
  - Cardiomyopathy [Recovering/Resolving]
  - Oedema peripheral [Unknown]
  - Cardiotoxicity [Recovering/Resolving]
  - Pneumonitis [Recovering/Resolving]
  - Bone marrow failure [Unknown]
